FAERS Safety Report 16877829 (Version 1)
Quarter: 2019Q4

REPORT INFORMATION
  Report Type: Report from Study
  Country: KR (occurrence: KR)
  Receive Date: 20191002
  Receipt Date: 20191002
  Transmission Date: 20200122
  Serious: Yes (Hospitalization)
  Sender: FDA-Public Use
  Company Number: KR-GILEAD-2019-0412604

PATIENT
  Age: 61 Year
  Sex: Male

DRUGS (5)
  1. ELVITEGRAVIR/COBICISTAT/EMTRICITABINE/TENOFOVIR ALAFENAMIDE [Suspect]
     Active Substance: COBICISTAT\ELVITEGRAVIR\EMTRICITABINE\TENOFOVIR
     Indication: HIV INFECTION
     Dosage: 1 DOSAGE FORM, QD
     Route: 048
     Dates: start: 20181127
  2. BENZETACIL [BENZATHINE BENZYLPENICILLIN] [Concomitant]
     Active Substance: PENICILLIN G BENZATHINE
     Indication: SYPHILIS
     Dosage: 2400 IU, QD
     Route: 030
     Dates: start: 20190521, end: 20190521
  3. BENZETACIL [BENZATHINE BENZYLPENICILLIN] [Concomitant]
     Active Substance: PENICILLIN G BENZATHINE
     Dosage: 2400 IU, QD
     Route: 030
     Dates: start: 20190604, end: 20190604
  4. XANAX [Concomitant]
     Active Substance: ALPRAZOLAM
     Indication: INSOMNIA
     Dosage: 0.5 MG
     Route: 048
     Dates: start: 20170106
  5. BENZETACIL [BENZATHINE BENZYLPENICILLIN] [Concomitant]
     Active Substance: PENICILLIN G BENZATHINE
     Dosage: 2400 IU, QD
     Route: 030
     Dates: start: 20190528, end: 20190528

REACTIONS (4)
  - Mental status changes [Recovered/Resolved]
  - Hypertension [Recovering/Resolving]
  - Nasopharyngitis [Recovered/Resolved]
  - Dyslipidaemia [Recovering/Resolving]

NARRATIVE: CASE EVENT DATE: 2019
